FAERS Safety Report 4492425-3 (Version None)
Quarter: 2004Q4

REPORT INFORMATION
  Report Type: 
  Country: None (occurrence: None)
  Receive Date: 20041029
  Receipt Date: 20041016
  Transmission Date: 20050328
  Serious: Yes (Hospitalization, Other)
  Sender: FDA-Public Use
  Company Number: 2004079365

PATIENT
  Age: 37 Year
  Sex: Male
  Weight: 75.7507 kg

DRUGS (1)
  1. GEODON [Suspect]
     Indication: ILL-DEFINED DISORDER

REACTIONS (2)
  - FOREIGN BODY TRAUMA [None]
  - GASTRIC OPERATION [None]
